FAERS Safety Report 6961764-6 (Version None)
Quarter: 2010Q3

REPORT INFORMATION
  Report Type: 
  Country: None (occurrence: None)
  Receive Date: 20100901
  Receipt Date: 20100826
  Transmission Date: 20110219
  Serious: Yes (Death, Hospitalization)
  Sender: FDA-Public Use
  Company Number: NL-ROCHE-723312

PATIENT
  Sex: Female

DRUGS (7)
  1. XELODA [Suspect]
     Indication: COLON CANCER METASTATIC
     Dosage: FREQUENCY: BID FOR 2 WEEKS, 1 WEEK STOP
     Route: 048
     Dates: start: 20100610, end: 20100624
  2. AVASTIN [Suspect]
     Indication: COLON CANCER METASTATIC
     Route: 042
     Dates: start: 20100610, end: 20100624
  3. OXALIPLATIN [Suspect]
     Indication: COLON CANCER METASTATIC
     Route: 042
     Dates: start: 20100610, end: 20100624
  4. IBUPROFEN [Concomitant]
     Dosage: FREQUENCY: TID AS NECESSARY
     Route: 048
  5. COZAAR [Concomitant]
     Dosage: FREQUENCY: QD
     Route: 048
  6. OMEPRAZOLE [Concomitant]
     Dosage: FREQUENCY: QD
     Route: 048
  7. CEFTRIAXONE [Concomitant]
     Dosage: FREQUENCY: QD
     Route: 042

REACTIONS (4)
  - GASTRIC HAEMORRHAGE [None]
  - SEPSIS [None]
  - THROMBOCYTOPENIA [None]
  - VOMITING [None]
